FAERS Safety Report 16377159 (Version 1)
Quarter: 2019Q2

REPORT INFORMATION
  Report Type: Spontaneous
  Country: FR (occurrence: FR)
  Receive Date: 20190531
  Receipt Date: 20190531
  Transmission Date: 20190711
  Serious: Yes (Life-Threatening, Hospitalization)
  Sender: FDA-Public Use
  Company Number: PHHY2019FR073308

PATIENT
  Age: 73 Year
  Sex: Male
  Weight: 73 kg

DRUGS (7)
  1. BISOPROLOL [Concomitant]
     Active Substance: BISOPROLOL
     Indication: PRODUCT USED FOR UNKNOWN INDICATION
     Dosage: 25 MG, QD
     Route: 048
  2. KARDEGIC [Concomitant]
     Active Substance: ASPIRIN DL-LYSINE
     Indication: PRODUCT USED FOR UNKNOWN INDICATION
     Dosage: 75 MG, QD
     Route: 048
  3. ENTRESTO [Suspect]
     Active Substance: SACUBITRIL\VALSARTAN
     Indication: CARDIAC FAILURE
     Dosage: 200 MG, BID (97/103 MG)
     Route: 048
     Dates: start: 20190311, end: 20190324
  4. LASILIX [Concomitant]
     Active Substance: FUROSEMIDE
     Indication: PRODUCT USED FOR UNKNOWN INDICATION
     Dosage: 60 MG, QD
     Route: 048
  5. TAHOR [Concomitant]
     Active Substance: ATORVASTATIN CALCIUM
     Indication: PRODUCT USED FOR UNKNOWN INDICATION
     Dosage: 80 MG, QD
     Route: 048
  6. XELEVIA [Concomitant]
     Active Substance: SITAGLIPTIN PHOSPHATE
     Indication: PRODUCT USED FOR UNKNOWN INDICATION
     Dosage: 300 MG, QD (3 DF OF 100 MG)
     Route: 048
  7. ENTRESTO [Suspect]
     Active Substance: SACUBITRIL\VALSARTAN
     Dosage: 50 MG, BID (24/26 MG)
     Route: 065

REACTIONS (8)
  - Dehydration [Unknown]
  - Atrioventricular block complete [Recovered/Resolved]
  - Hyperkalaemia [Recovered/Resolved]
  - Overdose [Unknown]
  - Acute kidney injury [Recovered/Resolved]
  - Glomerular filtration rate decreased [Unknown]
  - Blood creatinine increased [Unknown]
  - Blood urea increased [Unknown]

NARRATIVE: CASE EVENT DATE: 20190324
